FAERS Safety Report 7033315-1 (Version None)
Quarter: 2010Q4

REPORT INFORMATION
  Report Type: 
  Country: None (occurrence: None)
  Receive Date: 20101007
  Receipt Date: 20100929
  Transmission Date: 20110411
  Serious: Yes (Hospitalization)
  Sender: FDA-Public Use
  Company Number: B0678028A

PATIENT
  Age: 59 Year
  Sex: Male

DRUGS (1)
  1. AUGMENTIN '125' [Suspect]
     Route: 048
     Dates: start: 20100804, end: 20100804

REACTIONS (4)
  - DERMATITIS BULLOUS [None]
  - MONOPLEGIA [None]
  - PYREXIA [None]
  - STAPHYLOCOCCAL ABSCESS [None]
